FAERS Safety Report 7557480-2 (Version None)
Quarter: 2011Q2

REPORT INFORMATION
  Report Type: 
  Country: None (occurrence: None)
  Receive Date: 20110620
  Receipt Date: 20110603
  Transmission Date: 20111010
  Serious: No
  Sender: FDA-Public Use
  Company Number: US-B.I. PHARMACEUTICALS,INC./RIDGEFIELD-2011-BP-13099BP

PATIENT
  Sex: Male

DRUGS (12)
  1. PRADAXA [Suspect]
     Indication: ATRIAL FIBRILLATION
     Dosage: 300 MG
     Route: 048
     Dates: start: 20110101
  2. PRAVASTATIN SODIUM [Concomitant]
  3. VITAMIN B-12 [Concomitant]
  4. AVALIDE [Concomitant]
  5. PRADAXA [Suspect]
     Indication: BLOOD TEST
  6. METOPROLOL SUCCINATE EXTENDED RELEASE [Concomitant]
  7. POTASSIUM [Concomitant]
  8. VITAMIN D [Concomitant]
  9. LEVOXYL [Concomitant]
  10. DOXAZOSIN MESYLATE [Concomitant]
  11. OMEPRAZOLE DR [Concomitant]
  12. MAGNESIUM [Concomitant]

REACTIONS (2)
  - DIZZINESS POSTURAL [None]
  - DIZZINESS [None]
